FAERS Safety Report 16479257 (Version 3)
Quarter: 2021Q3

REPORT INFORMATION
  Report Type: Report from Study
  Country: US (occurrence: US)
  Receive Date: 20190626
  Receipt Date: 20210806
  Transmission Date: 20211014
  Serious: Yes (Hospitalization, Other)
  Sender: FDA-Public Use
  Company Number: US-SAOL THERAPEUTICS-2019SAO00239

PATIENT
  Sex: Male
  Weight: 12.9 kg

DRUGS (1)
  1. LIORESAL [Suspect]
     Active Substance: BACLOFEN
     Indication: MUSCLE SPASTICITY
     Dosage: FLEX DOSING
     Route: 037

REACTIONS (4)
  - Implant site dehiscence [Unknown]
  - Implant site haematoma [Recovered/Resolved]
  - Implant site infection [Unknown]
  - Muscle spasticity [Unknown]
